FAERS Safety Report 7861358-4 (Version None)
Quarter: 2011Q4

REPORT INFORMATION
  Report Type: 
  Country: None (occurrence: None)
  Receive Date: 20111027
  Receipt Date: 20111021
  Transmission Date: 20120403
  Serious: Yes (Other)
  Sender: FDA-Public Use
  Company Number: BR-PFIZER INC-2011257260

PATIENT
  Age: 78 Year
  Sex: Female
  Weight: 65 kg

DRUGS (5)
  1. AZORGA [Concomitant]
     Indication: GLAUCOMA
     Dosage: ONE DROP IN THE MORNING AND ONE DROP AT NIGHT
     Dates: start: 20080101
  2. PANTOPRAZOLE [Concomitant]
     Dosage: UNK
  3. XALATAN [Suspect]
     Indication: GLAUCOMA
     Dosage: ONE DROP (1.5 UG), ONCE DAILY IN LEFT EYE
     Route: 047
  4. GEROVITAL [Concomitant]
     Dosage: UNK
  5. SIMVASTATIN [Concomitant]
     Indication: BLOOD CHOLESTEROL INCREASED
     Dosage: UNK

REACTIONS (3)
  - OSTEOARTHRITIS [None]
  - EYE IRRITATION [None]
  - ARTHRITIS [None]
